FAERS Safety Report 8550704-4 (Version None)
Quarter: 2012Q3

REPORT INFORMATION
  Report Type: 
  Country: None (occurrence: None)
  Receive Date: 20120730
  Receipt Date: 20120724
  Transmission Date: 20120928
  Serious: Yes (Death)
  Sender: FDA-Public Use
  Company Number: US-GLAXOSMITHKLINE-A0987375A

PATIENT
  Age: 54 Year
  Sex: Male

DRUGS (1)
  1. VOTRIENT [Suspect]
     Indication: NEOPLASM MALIGNANT
     Dosage: 400MG TWICE PER DAY
     Route: 048
     Dates: start: 20120417

REACTIONS (1)
  - DEATH [None]
